FAERS Safety Report 4635031-X (Version None)
Quarter: 2005Q2

REPORT INFORMATION
  Report Type: 
  Country: None (occurrence: None)
  Receive Date: 20050411
  Receipt Date: 20050316
  Transmission Date: 20051028
  Serious: Yes (Disabling)
  Sender: FDA-Public Use
  Company Number: 2004119868

PATIENT
  Age: 55 Year
  Sex: Female
  Weight: 96.1626 kg

DRUGS (7)
  1. BEXTRA [Suspect]
     Indication: ARTHRITIS
     Dosage: 20 MG (20 MG, 1 IN 1 D), ORAL
     Route: 048
     Dates: start: 20021126, end: 20041201
  2. BEXTRA [Suspect]
     Indication: SPINAL OSTEOARTHRITIS
     Dosage: 20 MG (20 MG, 1 IN 1 D), ORAL
     Route: 048
     Dates: start: 20021126, end: 20041201
  3. ALENDRONATE SODIUM [Concomitant]
  4. SIMVASTATIN [Concomitant]
  5. LEVOTHYROXINE SODIUM [Concomitant]
  6. VITAMINS (VITAMINS) [Concomitant]
  7. MINERALS NOS (MINERALS NOS) [Concomitant]

REACTIONS (3)
  - DRUG INEFFECTIVE [None]
  - MUSCLE SPASMS [None]
  - PAIN [None]
